FAERS Safety Report 6536218-1 (Version None)
Quarter: 2010Q1

REPORT INFORMATION
  Report Type: 
  Country: None (occurrence: None)
  Receive Date: 20100106
  Receipt Date: 20091229
  Transmission Date: 20100710
  Serious: No
  Sender: FDA-Public Use
  Company Number: 20107879

PATIENT
  Age: 19 Year
  Sex: Male

DRUGS (1)
  1. LIORESAL [Suspect]
     Indication: MUSCLE SPASTICITY
     Dosage: 108 MCG, DAILY, INTRATHECAL
     Route: 037

REACTIONS (2)
  - PRODUCT CONTAMINATION [None]
  - SKIN DISORDER [None]
